FAERS Safety Report 19036924 (Version 2)
Quarter: 2021Q2

REPORT INFORMATION
  Report Type: Spontaneous
  Country: US (occurrence: US)
  Receive Date: 20210322
  Receipt Date: 20210402
  Transmission Date: 20210717
  Serious: No
  Sender: FDA-Public Use
  Company Number: US-LUPIN PHARMACEUTICALS INC.-2021-03220

PATIENT
  Age: 30 Year
  Sex: Female

DRUGS (7)
  1. LAPATINIB 250 MG FILM COATED TABLET [Suspect]
     Active Substance: LAPATINIB
     Dosage: 3 DOSAGE FORM(TABLETS), QD
     Route: 048
     Dates: start: 20210201, end: 20210225
  2. ZOLADEX [Concomitant]
     Active Substance: GOSERELIN ACETATE
     Indication: PRODUCT USED FOR UNKNOWN INDICATION
     Dosage: 3.6 MILLIGRAM
     Route: 065
  3. CALCIUM [Concomitant]
     Active Substance: CALCIUM
     Indication: PRODUCT USED FOR UNKNOWN INDICATION
     Dosage: 600 MILLIGRAM
     Route: 065
  4. LAPATINIB 250 MG FILM COATED TABLET [Suspect]
     Active Substance: LAPATINIB
     Dosage: 4 DOSAGE FORM(TABLETS), QD
     Route: 048
     Dates: start: 202101
  5. LAPATINIB 250 MG FILM COATED TABLET [Suspect]
     Active Substance: LAPATINIB
     Indication: BREAST CANCER
     Dosage: 5 DOSAGE FORM(TABLETS), QD
     Route: 048
     Dates: start: 20210113, end: 202101
  6. TAMOXIFEN [Concomitant]
     Active Substance: TAMOXIFEN
     Indication: PRODUCT USED FOR UNKNOWN INDICATION
     Dosage: 20 MILLIGRAM
     Route: 065
  7. FULVESTRANT. [Concomitant]
     Active Substance: FULVESTRANT
     Indication: PRODUCT USED FOR UNKNOWN INDICATION
     Dosage: UNK, 250MG/5ML
     Route: 065

REACTIONS (4)
  - Dermatitis [Unknown]
  - Oedema peripheral [Recovering/Resolving]
  - Diarrhoea [Unknown]
  - Rash [Unknown]

NARRATIVE: CASE EVENT DATE: 2021
